FAERS Safety Report 14528162 (Version 9)
Quarter: 2022Q3

REPORT INFORMATION
  Report Type: Report from Study
  Country: BR (occurrence: BR)
  Receive Date: 20180214
  Receipt Date: 20220920
  Transmission Date: 20221027
  Serious: Yes (Hospitalization, Other)
  Sender: FDA-Public Use
  Company Number: BR-BIOGEN-2018BI00524227

PATIENT
  Sex: Female
  Weight: 70 kg

DRUGS (41)
  1. TYSABRI [Suspect]
     Active Substance: NATALIZUMAB
     Indication: Multiple sclerosis
     Dosage: INFUSED OVER 1 HOUR
     Route: 050
     Dates: start: 201506
  2. TYSABRI [Suspect]
     Active Substance: NATALIZUMAB
     Dosage: INFUSED OVER 1 HOUR
     Route: 050
     Dates: start: 20150727, end: 20190312
  3. TYSABRI [Suspect]
     Active Substance: NATALIZUMAB
     Dosage: INFUSED OVER 1 HOUR
     Route: 050
     Dates: start: 2015, end: 2017
  4. CANDESARTAN CILEXETIL [Concomitant]
     Active Substance: CANDESARTAN CILEXETIL
     Indication: Cardiac disorder
     Route: 050
     Dates: start: 2012
  5. CANDESARTAN CILEXETIL [Concomitant]
     Active Substance: CANDESARTAN CILEXETIL
     Route: 050
  6. CANDESARTAN CILEXETIL [Concomitant]
     Active Substance: CANDESARTAN CILEXETIL
     Route: 050
     Dates: start: 2013
  7. CLOPIDOGREL BISULFATE [Concomitant]
     Active Substance: CLOPIDOGREL BISULFATE
     Indication: Cardiac disorder
     Route: 050
     Dates: start: 2012
  8. CLOPIDOGREL BISULFATE [Concomitant]
     Active Substance: CLOPIDOGREL BISULFATE
     Route: 050
  9. CLOPIDOGREL BISULFATE [Concomitant]
     Active Substance: CLOPIDOGREL BISULFATE
     Route: 050
     Dates: start: 2013
  10. ASPIRIN [Concomitant]
     Active Substance: ASPIRIN
     Indication: Cardiac disorder
     Route: 050
     Dates: start: 2012
  11. ASPIRIN [Concomitant]
     Active Substance: ASPIRIN
     Route: 050
  12. ASPIRIN [Concomitant]
     Active Substance: ASPIRIN
     Route: 050
     Dates: start: 2013
  13. GLICLAZIDE [Concomitant]
     Active Substance: GLICLAZIDE
     Indication: Diabetes mellitus
     Route: 050
  14. GLICLAZIDE [Concomitant]
     Active Substance: GLICLAZIDE
     Route: 050
  15. GLICLAZIDE [Concomitant]
     Active Substance: GLICLAZIDE
     Route: 050
     Dates: start: 1996
  16. APRESOLINE HYDROCHLORIDE [Concomitant]
     Active Substance: HYDRALAZINE HYDROCHLORIDE
     Indication: Product used for unknown indication
     Route: 050
  17. MONOCORDIL [Concomitant]
     Active Substance: ISOSORBIDE MONONITRATE
     Indication: Cardiac disorder
     Route: 050
  18. MONOCORDIL [Concomitant]
     Active Substance: ISOSORBIDE MONONITRATE
     Route: 050
  19. HYDROCHLOROTHIAZIDE [Concomitant]
     Active Substance: HYDROCHLOROTHIAZIDE
     Indication: Cardiac disorder
     Route: 050
  20. HYDROCHLOROTHIAZIDE [Concomitant]
     Active Substance: HYDROCHLOROTHIAZIDE
     Route: 050
  21. ALDACTONE [Concomitant]
     Active Substance: SPIRONOLACTONE
     Indication: Prophylaxis
     Route: 050
  22. ALDACTONE [Concomitant]
     Active Substance: SPIRONOLACTONE
     Route: 050
     Dates: start: 2000
  23. AMITRIPTYLINE [Concomitant]
     Active Substance: AMITRIPTYLINE
     Indication: Pain
     Route: 050
     Dates: start: 199201
  24. SERTRALINE [Concomitant]
     Active Substance: SERTRALINE HYDROCHLORIDE
     Indication: Product used for unknown indication
     Route: 050
  25. Ancoron (Amiodarone Hydrochloride) [Concomitant]
     Indication: Cardiac disorder
     Route: 050
  26. Ancoron (Amiodarone Hydrochloride) [Concomitant]
     Route: 050
     Dates: start: 2013
  27. PANTOPRAZOLE SODIUM [Concomitant]
     Active Substance: PANTOPRAZOLE SODIUM
     Indication: Gastric disorder
     Route: 050
  28. DOMPERIDONE [Concomitant]
     Active Substance: DOMPERIDONE
     Indication: Gastric disorder
     Route: 050
  29. DOMPERIDONE [Concomitant]
     Active Substance: DOMPERIDONE
     Route: 050
     Dates: start: 2013
  30. LEVOID (Sodium Levothyroxine) [Concomitant]
     Indication: Hypothyroidism
     Route: 050
  31. LEVOID (Sodium Levothyroxine) [Concomitant]
     Route: 050
     Dates: start: 2000
  32. FUROSEMIDE [Concomitant]
     Active Substance: FUROSEMIDE
     Indication: Blood pressure measurement
     Route: 050
  33. CARVEDILOL [Concomitant]
     Active Substance: CARVEDILOL
     Indication: Arrhythmia
     Route: 050
     Dates: start: 2013
  34. AMYTRIL (Amitriptyline) [Concomitant]
     Indication: Nervousness
     Route: 050
  35. AMYTRIL (Amitriptyline) [Concomitant]
     Route: 050
     Dates: start: 1990
  36. VITAMIN D [Concomitant]
     Active Substance: VITAMIN D NOS
     Indication: Multiple sclerosis
     Route: 050
  37. VITAMIN D [Concomitant]
     Active Substance: VITAMIN D NOS
     Route: 050
  38. ACETAMINOPHEN [Concomitant]
     Active Substance: ACETAMINOPHEN
     Indication: Pain
     Route: 050
  39. MELOXICAM [Concomitant]
     Active Substance: MELOXICAM
     Indication: Pain
     Route: 050
  40. HYDROCHLOROTHIAZIDE [Concomitant]
     Active Substance: HYDROCHLOROTHIAZIDE
     Indication: Cardiac disorder
     Route: 050
  41. ATORVASTATIN [Concomitant]
     Active Substance: ATORVASTATIN
     Indication: Blood cholesterol
     Route: 050
     Dates: start: 2019

REACTIONS (16)
  - Arrhythmia [Unknown]
  - Cardiomyopathy [Unknown]
  - Heart rate decreased [Recovered/Resolved]
  - Cardiomegaly [Recovered/Resolved]
  - Pain [Recovered/Resolved]
  - Myocardial infarction [Unknown]
  - Cartilage injury [Unknown]
  - Fatigue [Unknown]
  - Polyneuropathy [Not Recovered/Not Resolved]
  - Fibromyalgia [Not Recovered/Not Resolved]
  - Vein rupture [Not Recovered/Not Resolved]
  - Vein collapse [Not Recovered/Not Resolved]
  - Somnolence [Unknown]
  - Insomnia [Not Recovered/Not Resolved]
  - Dizziness [Unknown]
  - Headache [Not Recovered/Not Resolved]

NARRATIVE: CASE EVENT DATE: 20150101
